FAERS Safety Report 8220247-6 (Version None)
Quarter: 2012Q1

REPORT INFORMATION
  Report Type: 
  Country: None (occurrence: None)
  Receive Date: 20120320
  Receipt Date: 20120307
  Transmission Date: 20120608
  Serious: Yes (Other)
  Sender: FDA-Public Use
  Company Number: KR-B.I. PHARMACEUTICALS,INC./RIDGEFIELD-2011-BP-28098YA

PATIENT
  Age: 73 Year
  Sex: Female
  Weight: 75 kg

DRUGS (4)
  1. CINALONG (CILNIDIPINE) [Concomitant]
  2. FUROSEMIDE (FUROSEMIDE) [Concomitant]
  3. TAMSULOSIN HCL [Suspect]
     Indication: NEUROGENIC BLADDER
     Route: 048
     Dates: start: 20110513
  4. CARVEDILOL [Concomitant]

REACTIONS (2)
  - HYPERTENSION [None]
  - RENAL FAILURE CHRONIC [None]
